FAERS Safety Report 19595607 (Version 4)
Quarter: 2021Q3

REPORT INFORMATION
  Report Type: Report from Study
  Country: US (occurrence: US)
  Receive Date: 20210722
  Receipt Date: 20210913
  Transmission Date: 20211014
  Serious: No
  Sender: FDA-Public Use
  Company Number: NVSC2021US157472

PATIENT
  Age: 21 Year
  Sex: Female

DRUGS (1)
  1. COSENTYX [Suspect]
     Active Substance: SECUKINUMAB
     Indication: PSORIASIS
     Dosage: 300 MG, QMO
     Route: 058

REACTIONS (5)
  - Abdominal pain upper [Unknown]
  - Pain [Unknown]
  - Pruritus [Unknown]
  - Sunburn [Unknown]
  - Lip blister [Unknown]

NARRATIVE: CASE EVENT DATE: 20210807
